FAERS Safety Report 6801888-7 (Version None)
Quarter: 2010Q2

REPORT INFORMATION
  Report Type: 
  Country: None (occurrence: None)
  Receive Date: 20100629
  Receipt Date: 20100621
  Transmission Date: 20101027
  Serious: Yes (Hospitalization)
  Sender: FDA-Public Use
  Company Number: CA-ASTRAZENECA-2010SE29901

PATIENT
  Age: 19 Year
  Sex: Male

DRUGS (2)
  1. SEROQUEL [Suspect]
     Route: 048
  2. RISPERDAL [Suspect]
     Route: 065

REACTIONS (5)
  - AGGRESSION [None]
  - DELUSION [None]
  - FEELING ABNORMAL [None]
  - HALLUCINATION [None]
  - PSYCHOTIC DISORDER [None]
